FAERS Safety Report 6630944-1 (Version None)
Quarter: 2010Q1

REPORT INFORMATION
  Report Type: 
  Country: None (occurrence: None)
  Receive Date: 20100309
  Receipt Date: 20100301
  Transmission Date: 20100710
  Serious: Yes (Hospitalization)
  Sender: FDA-Public Use
  Company Number: SPV1-2010-00385

PATIENT
  Age: 12 Year
  Sex: Female
  Weight: 65.8 kg

DRUGS (2)
  1. VYVANSE [Suspect]
     Indication: ATTENTION DEFICIT/HYPERACTIVITY DISORDER
     Dosage: 30 MG, 1X/DAY:QD, ORAL
     Route: 048
     Dates: start: 20091101, end: 20100201
  2. ABIILIFY (APRIPIPRAZOLE) TABLET [Concomitant]

REACTIONS (3)
  - AGGRESSION [None]
  - NEGATIVISM [None]
  - SELF INJURIOUS BEHAVIOUR [None]
